FAERS Safety Report 22041267 (Version 1)
Quarter: 2023Q1

REPORT INFORMATION
  Report Type: Other
  Country: None (occurrence: AU)
  Receive Date: 20230227
  Receipt Date: 20230227
  Transmission Date: 20230418
  Serious: Yes (Life-Threatening, Hospitalization)
  Sender: FDA-Public Use
  Company Number: AU-B.Braun Medical Inc.-2138478

PATIENT
  Age: 38 Year
  Sex: Female

DRUGS (2)
  1. POTASSIUM CHLORIDE [Suspect]
     Active Substance: POTASSIUM CHLORIDE
     Indication: Electrocardiogram QT prolonged
     Route: 042
  2. MAGNESIUM [Suspect]
     Active Substance: MAGNESIUM

REACTIONS (12)
  - Off label use [Unknown]
  - Drug ineffective [Unknown]
  - Muscular weakness [Unknown]
  - Ventricular tachycardia [Unknown]
  - Ventricular extrasystoles [Unknown]
  - Electrocardiogram QT prolonged [Unknown]
  - Agitation [Unknown]
  - Abdominal pain [Unknown]
  - Diarrhoea [Unknown]
  - Electrocardiogram R on T phenomenon [Unknown]
  - Cardiac arrest [Unknown]
  - Acute kidney injury [Unknown]
